FAERS Safety Report 7318567-2 (Version None)
Quarter: 2011Q1

REPORT INFORMATION
  Report Type: 
  Country: None (occurrence: None)
  Receive Date: 20110218
  Receipt Date: 20110218
  Transmission Date: 20110831
  Serious: Yes (Life-Threatening)
  Sender: FDA-Public Use
  Company Number: None

PATIENT
  Age: 67 Year
  Sex: Male
  Weight: 163.2949 kg

DRUGS (1)
  1. ACTOS [Suspect]
     Indication: BLOOD GLUCOSE ABNORMAL
     Dosage: 1 TABLET DAILY PO
     Route: 048
     Dates: start: 20041029, end: 20101029

REACTIONS (4)
  - WEIGHT INCREASED [None]
  - LEG AMPUTATION [None]
  - PAIN [None]
  - DIABETES MELLITUS [None]
